FAERS Safety Report 10877894 (Version 3)
Quarter: 2015Q1

REPORT INFORMATION
  Report Type: Spontaneous
  Country: JP (occurrence: None)
  Receive Date: 20150224
  Receipt Date: 20150317
  Transmission Date: 20150721
  Serious: Yes (Hospitalization)
  Sender: FDA-Public Use
  Company Number: SP09063

PATIENT
  Age: 86 Year
  Sex: Male

DRUGS (1)
  1. MOVIPREP [Suspect]
     Active Substance: ASCORBIC ACID\POLYETHYLENE GLYCOL 3350\POTASSIUM CHLORIDE\SODIUM ASCORBATE\SODIUM CHLORIDE\SODIUM SULFATE
     Indication: BOWEL PREPARATION
     Route: 048
     Dates: start: 20150206, end: 20150206

REACTIONS (10)
  - Haemoglobin decreased [None]
  - White blood cell count increased [None]
  - Radial pulse abnormal [None]
  - Vomiting [None]
  - Pallor [None]
  - Bradycardia [None]
  - Pulse absent [None]
  - Blood potassium decreased [None]
  - Altered state of consciousness [None]
  - Shock [None]

NARRATIVE: CASE EVENT DATE: 20150206
